FAERS Safety Report 10448893 (Version 1)
Quarter: 2014Q3

REPORT INFORMATION
  Report Type: Spontaneous
  Country: CA (occurrence: CA)
  Receive Date: 20140912
  Receipt Date: 20140912
  Transmission Date: 20150326
  Serious: Yes (Other)
  Sender: FDA-Public Use
  Company Number: CA-ROCHE-1460551

PATIENT
  Age: 60 Year
  Sex: Female
  Weight: 59 kg

DRUGS (4)
  1. NAPROXEN SODIUM. [Suspect]
     Active Substance: NAPROXEN SODIUM
     Indication: PRODUCT USED FOR UNKNOWN INDICATION
     Route: 065
  2. REMICADE [Suspect]
     Active Substance: INFLIXIMAB
     Indication: PRODUCT USED FOR UNKNOWN INDICATION
     Route: 042
  3. TYLENOL [Concomitant]
     Active Substance: ACETAMINOPHEN
  4. SOLU-CORTEF [Concomitant]
     Active Substance: HYDROCORTISONE SODIUM SUCCINATE
     Route: 065

REACTIONS (5)
  - Dyspnoea [Unknown]
  - Infusion related reaction [Unknown]
  - Vomiting [Unknown]
  - Flushing [Unknown]
  - Haemoglobin decreased [Unknown]
